FAERS Safety Report 6532582-8 (Version None)
Quarter: 2010Q1

REPORT INFORMATION
  Report Type: 
  Country: None (occurrence: None)
  Receive Date: 20100111
  Receipt Date: 20100104
  Transmission Date: 20100710
  Serious: Yes (Other)
  Sender: FDA-Public Use
  Company Number: BR-ROCHE-672990

PATIENT
  Sex: Female
  Weight: 54 kg

DRUGS (1)
  1. ROACUTAN [Suspect]
     Indication: ACNE
     Dosage: DOSE: 2 CAPSULES OF 20 MG DAILY
     Route: 065
     Dates: start: 20091001, end: 20091128

REACTIONS (4)
  - ANXIETY [None]
  - DEPRESSION [None]
  - HEART RATE INCREASED [None]
  - HYPERHIDROSIS [None]
